FAERS Safety Report 6854495-4 (Version None)
Quarter: 2010Q3

REPORT INFORMATION
  Report Type: 
  Country: None (occurrence: None)
  Receive Date: 20100717
  Receipt Date: 20080211
  Transmission Date: 20110219
  Serious: No
  Sender: FDA-Public Use
  Company Number: US-PFIZER INC-2008001563

PATIENT
  Sex: Female
  Weight: 50 kg

DRUGS (1)
  1. CHANTIX [Suspect]
     Indication: SMOKING CESSATION THERAPY
     Dates: start: 20071101

REACTIONS (9)
  - DIPLOPIA [None]
  - DRUG INTOLERANCE [None]
  - DYSPEPSIA [None]
  - FEELING HOT [None]
  - NAUSEA [None]
  - PARAESTHESIA ORAL [None]
  - TREMOR [None]
  - VERTIGO [None]
  - VOMITING [None]
